FAERS Safety Report 9584507 (Version 1)
Quarter: 2013Q4

REPORT INFORMATION
  Report Type: Spontaneous
  Country: US (occurrence: US)
  Receive Date: 20131002
  Receipt Date: 20131002
  Transmission Date: 20140711
  Serious: No
  Sender: FDA-Public Use
  Company Number: US-AMGEN-USASP2013053136

PATIENT
  Age: 56 Year
  Sex: Male

DRUGS (2)
  1. ENBREL [Suspect]
     Indication: PSORIASIS
     Dosage: 50 MG, QWK
     Route: 065
     Dates: start: 2006
  2. STELARA [Concomitant]
     Dosage: UNK

REACTIONS (7)
  - Muscle strain [Not Recovered/Not Resolved]
  - Nuclear magnetic resonance imaging abnormal [Not Recovered/Not Resolved]
  - Hip deformity [Not Recovered/Not Resolved]
  - Skeletal injury [Not Recovered/Not Resolved]
  - Nasopharyngitis [Recovered/Resolved]
  - Anaemia [Not Recovered/Not Resolved]
  - Psoriasis [Not Recovered/Not Resolved]
